FAERS Safety Report 13947076 (Version 2)
Quarter: 2017Q3

REPORT INFORMATION
  Report Type: Spontaneous
  Country: US (occurrence: US)
  Receive Date: 20170907
  Receipt Date: 20170921
  Transmission Date: 20171128
  Serious: No
  Sender: FDA-Public Use
  Company Number: US-BRISTOL-MYERS SQUIBB COMPANY-BMS-2017-080226

PATIENT
  Sex: Female
  Weight: 63.9 kg

DRUGS (2)
  1. COUMADIN [Suspect]
     Active Substance: WARFARIN SODIUM
     Indication: CEREBROVASCULAR ACCIDENT
     Route: 048
  2. COUMADIN [Suspect]
     Active Substance: WARFARIN SODIUM
     Indication: THROMBOSIS
     Route: 065

REACTIONS (7)
  - Fatigue [Unknown]
  - Pain [Unknown]
  - Asthenia [Unknown]
  - Pigmentation disorder [Unknown]
  - Adverse event [Unknown]
  - Contusion [Unknown]
  - Bone pain [Unknown]
